FAERS Safety Report 9469345 (Version 4)
Quarter: 2013Q4

REPORT INFORMATION
  Report Type: Spontaneous
  Country: US (occurrence: None)
  Receive Date: 20130815
  Receipt Date: 20131125
  Transmission Date: 20140711
  Serious: Yes (Hospitalization, Other)
  Sender: FDA-Public Use
  Company Number: AUR-APL-2013-06634

PATIENT
  Age: 54 Year
  Sex: Female

DRUGS (7)
  1. METFORMIN [Suspect]
     Indication: PRODUCT USED FOR UNKNOWN INDICATION
  2. ASPIRIN [Suspect]
     Indication: PRODUCT USED FOR UNKNOWN INDICATION
  3. ENALAPRIL [Suspect]
     Indication: PRODUCT USED FOR UNKNOWN INDICATION
  4. IBUPROFEN [Suspect]
     Indication: PRODUCT USED FOR UNKNOWN INDICATION
  5. NIMESULIDE [Suspect]
     Indication: PRODUCT USED FOR UNKNOWN INDICATION
  6. GLIMEPIRIDE (GLIMEPIRIDE) [Concomitant]
  7. IMIPRAMINE (IMIPRAMINE) [Concomitant]

REACTIONS (43)
  - Confusional state [None]
  - Unresponsive to stimuli [None]
  - Abdominal pain [None]
  - Vomiting [None]
  - Malaise [None]
  - Asthenia [None]
  - Chills [None]
  - Hypophagia [None]
  - Moaning [None]
  - Heart rate decreased [None]
  - Blood glucose increased [None]
  - Incoherent [None]
  - Agitation [None]
  - Discomfort [None]
  - Atrial fibrillation [None]
  - Electrocardiogram ST segment depression [None]
  - Somnolence [None]
  - Breast calcifications [None]
  - Blood pressure decreased [None]
  - Hypothermia [None]
  - Gallbladder disorder [None]
  - Renal atrophy [None]
  - Nephrolithiasis [None]
  - Atelectasis [None]
  - Continuous haemodiafiltration [None]
  - Ascites [None]
  - Respiratory distress [None]
  - Metabolic acidosis [None]
  - Hyperphosphataemia [None]
  - Lactic acidosis [None]
  - Renal failure acute [None]
  - Pancreatitis acute [None]
  - Metabolic alkalosis [None]
  - Cardiac failure [None]
  - Arrhythmia [None]
  - Respiratory disorder [None]
  - Toxicity to various agents [None]
  - Oedematous pancreatitis [None]
  - Infection [None]
  - Skin warm [None]
  - Renal failure acute [None]
  - Septic shock [None]
  - Cardiogenic shock [None]
